FAERS Safety Report 8465607-3 (Version None)
Quarter: 2012Q2

REPORT INFORMATION
  Report Type: 
  Country: None (occurrence: None)
  Receive Date: 20120323
  Receipt Date: 20111014
  Transmission Date: 20120825
  Serious: Yes (Hospitalization)
  Sender: FDA-Public Use
  Company Number: 163-21880-11101859

PATIENT
  Age: 69 Year
  Sex: Male

DRUGS (6)
  1. ASPIRIN [Concomitant]
  2. AUGMENTIN (CLAVULIN) (UNKNOWN) [Concomitant]
  3. REVLIMID [Suspect]
     Indication: MULTIPLE MYELOMA
     Dosage: 25 MG, DAILY X 21 DAYS, PO 15 MG, 1 IN 1 D, PO 15 MG, 1 IN 1 D, PO 25 MG, DAILY X 21 DAYS, PO
     Route: 048
     Dates: start: 20090701
  4. REVLIMID [Suspect]
     Indication: MULTIPLE MYELOMA
     Dosage: 25 MG, DAILY X 21 DAYS, PO 15 MG, 1 IN 1 D, PO 15 MG, 1 IN 1 D, PO 25 MG, DAILY X 21 DAYS, PO
     Route: 048
     Dates: start: 20100101
  5. REVLIMID [Suspect]
     Indication: MULTIPLE MYELOMA
     Dosage: 25 MG, DAILY X 21 DAYS, PO 15 MG, 1 IN 1 D, PO 15 MG, 1 IN 1 D, PO 25 MG, DAILY X 21 DAYS, PO
     Route: 048
     Dates: start: 20100501
  6. REVLIMID [Suspect]
     Indication: MULTIPLE MYELOMA
     Dosage: 25 MG, DAILY X 21 DAYS, PO 15 MG, 1 IN 1 D, PO 15 MG, 1 IN 1 D, PO 25 MG, DAILY X 21 DAYS, PO
     Route: 048
     Dates: start: 20090522

REACTIONS (1)
  - CELLULITIS [None]
